FAERS Safety Report 4937225-2 (Version None)
Quarter: 2006Q1

REPORT INFORMATION
  Report Type: 
  Country: None (occurrence: None)
  Receive Date: 20060309
  Receipt Date: 20060301
  Transmission Date: 20060701
  Serious: Yes (Hospitalization, Other)
  Sender: FDA-Public Use
  Company Number: US-JNJFOC-20060300916

PATIENT
  Sex: Male
  Weight: 63.5 kg

DRUGS (10)
  1. FENTANYL [Suspect]
     Route: 062
  2. GABAPENTIN [Concomitant]
     Route: 048
  3. HYDRALAZINE [Concomitant]
     Route: 048
  4. CEPHALEXIN [Concomitant]
     Indication: INFECTION
     Route: 048
  5. MINOCYCLINE HCL [Concomitant]
     Indication: INFECTION
     Route: 048
  6. DILTIAZEM [Concomitant]
     Route: 048
  7. BUPROPION HCL [Concomitant]
     Indication: ANXIETY
     Route: 048
  8. TEMAZEPAM [Concomitant]
     Indication: SLEEP DISORDER
     Route: 048
  9. OXYCODONE [Concomitant]
     Indication: BREAKTHROUGH PAIN
     Route: 048
  10. RISPERIDONE [Concomitant]
     Indication: DRUG USE FOR UNKNOWN INDICATION
     Route: 048

REACTIONS (4)
  - CONFUSIONAL STATE [None]
  - DELUSION [None]
  - DRUG INEFFECTIVE [None]
  - GANGRENE [None]
